FAERS Safety Report 22599773 (Version 1)
Quarter: 2023Q2

REPORT INFORMATION
  Report Type: Spontaneous
  Country: FR (occurrence: FR)
  Receive Date: 20230614
  Receipt Date: 20230614
  Transmission Date: 20230722
  Serious: Yes (Hospitalization)
  Sender: FDA-Public Use
  Company Number: None

PATIENT
  Age: 19 Year
  Sex: Male

DRUGS (5)
  1. XANAX [Suspect]
     Active Substance: ALPRAZOLAM
     Indication: Product used for unknown indication
     Dosage: 2-3 CP PER DAY DOSE NOT SPECIFIED EVERY 2-3 DAYS
     Route: 048
     Dates: start: 202109, end: 202111
  2. KETAMINE [Suspect]
     Active Substance: KETAMINE
     Indication: Product used for unknown indication
     Dosage: OCCASIONAL IN THE EVENING
     Route: 045
     Dates: start: 2019
  3. COCAINE [Suspect]
     Active Substance: COCAINE
     Indication: Product used for unknown indication
     Dosage: OCCASIONAL
     Route: 045
     Dates: start: 202011
  4. CANNABIS SATIVA SUBSP. INDICA TOP [Suspect]
     Active Substance: CANNABIS SATIVA SUBSP. INDICA TOP
     Indication: Product used for unknown indication
     Dosage: 2 TO 10 JOINTS PER DAY
     Route: 055
     Dates: start: 2016
  5. MIDOMAFETAMINE [Suspect]
     Active Substance: MIDOMAFETAMINE
     Indication: Product used for unknown indication
     Dosage: RECREATIONAL 3-4 TAKEN IN 6 MONTHS
     Route: 065
     Dates: start: 2018

REACTIONS (6)
  - Suicidal ideation [Recovered/Resolved]
  - Mixed anxiety and depressive disorder [Recovering/Resolving]
  - Social anxiety disorder [Recovering/Resolving]
  - Sleep disorder [Recovering/Resolving]
  - Intentional product misuse [Recovered/Resolved]
  - Drug abuse [Not Recovered/Not Resolved]

NARRATIVE: CASE EVENT DATE: 20210901
